FAERS Safety Report 5134331-7 (Version None)
Quarter: 2006Q4

REPORT INFORMATION
  Report Type: 
  Country: None (occurrence: None)
  Receive Date: 20060831
  Receipt Date: 20060524
  Transmission Date: 20070319
  Serious: No
  Sender: FDA-Public Use
  Company Number: 2006-BP-04603BP

PATIENT
  Sex: Male

DRUGS (12)
  1. SPIRIVA [Suspect]
     Indication: BRONCHITIS CHRONIC
     Dosage: 18 MCG (18 MCG,1 IN 1 D),IH
     Dates: start: 20050101, end: 20060101
  2. SPIRIVA [Suspect]
     Indication: CHRONIC OBSTRUCTIVE PULMONARY DISEASE
     Dosage: 18 MCG (18 MCG,1 IN 1 D),IH
     Dates: start: 20050101, end: 20060101
  3. SPIRIVA [Suspect]
     Indication: SILICOSIS
     Dosage: 18 MCG (18 MCG,1 IN 1 D),IH
     Dates: start: 20050101, end: 20060101
  4. AVANDIA [Concomitant]
  5. GLUCOPHAGE [Concomitant]
  6. NEURONTIN [Concomitant]
  7. ZOCOR [Concomitant]
  8. CARDIA XL [Concomitant]
  9. ASPIRIN [Concomitant]
  10. ASACOL [Concomitant]
  11. OXYGEN (OXYGEN) [Concomitant]
  12. ALLOPURINOL [Concomitant]

REACTIONS (1)
  - DRUG INEFFECTIVE [None]
